FAERS Safety Report 6431263-9 (Version None)
Quarter: 2009Q4

REPORT INFORMATION
  Report Type: 
  Country: None (occurrence: None)
  Receive Date: 20091106
  Receipt Date: 20091103
  Transmission Date: 20100525
  Serious: Yes (Life-Threatening, Hospitalization, Other)
  Sender: FDA-Public Use
  Company Number: US-PFIZER INC-2009278068

PATIENT
  Sex: Female

DRUGS (19)
  1. SILDENAFIL CITRATE [Suspect]
     Indication: PULMONARY ARTERIAL HYPERTENSION
     Dosage: 20 MG, UNK
     Route: 048
     Dates: start: 20081001
  2. DILTIAZEM HCL [Suspect]
     Dosage: UNK
     Route: 042
     Dates: start: 20090803
  3. DILTIAZEM HCL [Suspect]
     Dosage: UNK
     Route: 048
     Dates: start: 20090803
  4. ILOPROST [Suspect]
     Dosage: UNK
     Route: 055
     Dates: start: 20090604
  5. ALEVE [Suspect]
     Dosage: UNK
     Route: 048
     Dates: start: 20090201, end: 20090201
  6. BOSENTAN [Suspect]
     Indication: PULMONARY ARTERIAL HYPERTENSION
     Dosage: UNK
     Route: 048
     Dates: start: 20081118, end: 20090120
  7. BOSENTAN [Suspect]
     Dosage: 125 MG, UNK
     Route: 048
     Dates: start: 20090121, end: 20090527
  8. ACETYLSALICYLIC ACID [Concomitant]
     Dosage: UNK
     Route: 048
     Dates: start: 20020611
  9. ATORVASTATIN [Concomitant]
     Dosage: UNK
     Route: 048
     Dates: start: 20070301
  10. CALCIUM CITRATE [Concomitant]
     Dosage: UNK
     Route: 048
     Dates: start: 20020617
  11. ESTROPIPATE [Concomitant]
     Dosage: UNK
     Route: 048
     Dates: start: 20040426
  12. FUROSEMIDE [Concomitant]
     Dosage: UNK
     Route: 048
     Dates: start: 20071002
  13. LEVOTHYROXINE [Concomitant]
     Dosage: UNK
     Route: 048
     Dates: start: 20070313
  14. MULTIVITAMIN ^LAPPE^ [Concomitant]
     Dosage: UNK
     Route: 048
     Dates: start: 20070301
  15. NIFEDIPINE [Concomitant]
     Dosage: UNK
     Route: 048
     Dates: start: 20070327
  16. OMEPRAZOLE [Concomitant]
     Dosage: UNK
     Route: 048
     Dates: start: 20030403
  17. OXYGEN [Concomitant]
     Dosage: UNK
     Route: 055
     Dates: start: 20071002
  18. POTASSIUM CHLORIDE [Concomitant]
     Dosage: UNK
     Route: 048
     Dates: start: 20080226
  19. METOPROLOL [Concomitant]
     Dosage: UNK
     Route: 048
     Dates: start: 20080220, end: 20090901

REACTIONS (4)
  - BLOOD PRESSURE SYSTOLIC DECREASED [None]
  - PNEUMONIA [None]
  - RESPIRATORY FAILURE [None]
  - SEPSIS [None]
